FAERS Safety Report 4463329-7 (Version None)
Quarter: 2004Q3

REPORT INFORMATION
  Report Type: 
  Country: None (occurrence: None)
  Receive Date: 20040928
  Receipt Date: 20040915
  Transmission Date: 20050211
  Serious: Yes (Death, Other)
  Sender: FDA-Public Use
  Company Number: 2004025130

PATIENT
  Age: 28 Year
  Sex: Male

DRUGS (4)
  1. GEODON [Suspect]
     Indication: PSYCHOTIC DISORDER
     Dosage: 20 MG (20 MG, ONCE), INTRAMUSCULAR
     Route: 030
     Dates: start: 20040401, end: 20040401
  2. HALOPERIDOL DECANOATE [Concomitant]
  3. MIRTAZAPINE [Concomitant]
  4. DIPHENHYDRAMINE HCL [Concomitant]

REACTIONS (5)
  - BRADYCARDIA [None]
  - CARDIAC ARREST [None]
  - NEUROLEPTIC MALIGNANT SYNDROME [None]
  - RESPIRATORY DISTRESS [None]
  - SUDDEN DEATH [None]
